FAERS Safety Report 4450881-0 (Version None)
Quarter: 2004Q3

REPORT INFORMATION
  Report Type: 
  Country: None (occurrence: None)
  Receive Date: 20040916
  Receipt Date: 20011016
  Transmission Date: 20050211
  Serious: Yes (Other)
  Sender: FDA-Public Use
  Company Number: US-BRISTOL-MYERS SQUIBB COMPANY-11542727

PATIENT
  Age: 30 Year
  Sex: Female

DRUGS (9)
  1. STADOL [Suspect]
     Indication: PAIN
     Route: 045
     Dates: start: 19930610
  2. STADOL [Suspect]
     Dosage: INJECTIONS.
  3. HYDROCODONE TARTRATE+ACETAMINOPHEN [Concomitant]
  4. CARISOPRODOL [Concomitant]
  5. LORTAB [Concomitant]
  6. SKELAXIN [Concomitant]
  7. PROMETHAZINE [Concomitant]
  8. CYCLOBENZAPRINE HCL [Concomitant]
  9. ULTRACET [Concomitant]

REACTIONS (1)
  - DEPENDENCE [None]
